FAERS Safety Report 13647138 (Version 1)
Quarter: 2017Q2

REPORT INFORMATION
  Report Type: Spontaneous
  Country: US (occurrence: US)
  Receive Date: 20170613
  Receipt Date: 20170613
  Transmission Date: 20170830
  Serious: No
  Sender: FDA-Public Use
  Company Number: US-TRIS PHARMA, INC-2017TRISPO00053

PATIENT

DRUGS (6)
  1. ADDERALL [Concomitant]
     Active Substance: AMPHETAMINE ASPARTATE\AMPHETAMINE SULFATE\DEXTROAMPHETAMINE SACCHARATE\DEXTROAMPHETAMINE SULFATE
     Indication: PRODUCT USED FOR UNKNOWN INDICATION
     Dosage: UNK
     Route: 065
     Dates: start: 2002
  2. DEXTROMETHORPHAN POLISTIREX [Suspect]
     Active Substance: DEXTROMETHORPHAN HYDROBROMIDE
     Dosage: 30 MG (5 ML), SINGLE, DOSE DECREASED
     Route: 048
     Dates: start: 20170414, end: 20170414
  3. DEXTROMETHORPHAN POLISTIREX [Suspect]
     Active Substance: DEXTROMETHORPHAN HYDROBROMIDE
     Indication: COUGH
     Dosage: 60 MG (10ML), SINGLE
     Route: 048
     Dates: start: 20170413, end: 20170413
  4. BUPROPION. [Concomitant]
     Active Substance: BUPROPION
     Indication: PRODUCT USED FOR UNKNOWN INDICATION
     Dosage: UNK
     Route: 065
     Dates: start: 2002
  5. PROZAC [Concomitant]
     Active Substance: FLUOXETINE HYDROCHLORIDE
     Indication: PRODUCT USED FOR UNKNOWN INDICATION
     Dosage: UNK
     Route: 065
     Dates: start: 2002
  6. METHYLPREDNISOLONE. [Concomitant]
     Active Substance: METHYLPREDNISOLONE
     Indication: PRODUCT USED FOR UNKNOWN INDICATION
     Dosage: UNK
     Route: 065
     Dates: start: 20170410

REACTIONS (3)
  - Energy increased [Not Recovered/Not Resolved]
  - Drug effect decreased [Unknown]
  - Underdose [Unknown]

NARRATIVE: CASE EVENT DATE: 20170414
